FAERS Safety Report 8413407-2 (Version None)
Quarter: 2012Q2

REPORT INFORMATION
  Report Type: 
  Country: None (occurrence: None)
  Receive Date: 20120605
  Receipt Date: 20120531
  Transmission Date: 20120825
  Serious: Yes (Other)
  Sender: FDA-Public Use
  Company Number: US-PFIZER INC-2012121418

PATIENT
  Sex: Male
  Weight: 111.11 kg

DRUGS (2)
  1. DEPO-TESTOSTERONE [Suspect]
     Indication: ORCHIDECTOMY
     Dosage: 200 MG/ML, ONCE IN EVERY TWO WEEKS
     Route: 030
     Dates: start: 19910101
  2. DEPO-TESTOSTERONE [Suspect]
     Indication: TESTIS CANCER

REACTIONS (7)
  - MALAISE [None]
  - CARDIAC DISORDER [None]
  - ABDOMINAL PAIN UPPER [None]
  - GASTROOESOPHAGEAL REFLUX DISEASE [None]
  - FEELING HOT [None]
  - THIRST [None]
  - CHROMATURIA [None]
